FAERS Safety Report 25473130 (Version 1)
Quarter: 2025Q2

REPORT INFORMATION
  Report Type: Spontaneous
  Country: PL (occurrence: PL)
  Receive Date: 20250624
  Receipt Date: 20250624
  Transmission Date: 20250716
  Serious: Yes (Other)
  Sender: MERCK SHARP & DOHME LLC
  Company Number: None

PATIENT
  Age: 5 Year
  Sex: Male

DRUGS (2)
  1. M-M-RVAXPRO [Suspect]
     Active Substance: MEASLES VIRUS STRAIN ENDERS^ ATTENUATED EDMONSTON LIVE ANTIGEN\MUMPS VIRUS STRAIN B LEVEL JERYL LYNN
     Indication: Immunisation
     Route: 030
     Dates: start: 20210624, end: 20210624
  2. STERILE DILUENT (WATER) [Suspect]
     Active Substance: WATER
     Indication: Immunisation
     Route: 030
     Dates: start: 20210624, end: 20210624

REACTIONS (7)
  - Vaccination site reaction [Recovered/Resolved]
  - Diarrhoea [Recovered/Resolved]
  - Vaccination site pain [Not Recovered/Not Resolved]
  - Pyrexia [Recovered/Resolved]
  - Vaccination site erythema [Recovered/Resolved]
  - Vaccination site induration [Recovered/Resolved]
  - Vaccination site oedema [Recovered/Resolved]

NARRATIVE: CASE EVENT DATE: 20210624
